FAERS Safety Report 17846899 (Version 2)
Quarter: 2020Q2

REPORT INFORMATION
  Report Type: Spontaneous
  Country: CA (occurrence: CA)
  Receive Date: 20200601
  Receipt Date: 20200630
  Transmission Date: 20200714
  Serious: Yes (Other)
  Sender: FDA-Public Use
  Company Number: CA-AMERICAN REGENT INC-2020001157

PATIENT
  Age: 19 Year
  Sex: Female

DRUGS (1)
  1. VENOFER [Suspect]
     Active Substance: IRON SUCROSE
     Indication: ANAEMIA OF PREGNANCY
     Dosage: 300 MILLIGRAM
     Route: 065
     Dates: start: 2019, end: 2019

REACTIONS (5)
  - Nausea [Unknown]
  - Vomiting [Unknown]
  - Pruritus [Unknown]
  - Urticaria [Unknown]
  - Maternal exposure during pregnancy [Unknown]

NARRATIVE: CASE EVENT DATE: 20191218
